FAERS Safety Report 5674921-6 (Version None)
Quarter: 2008Q1

REPORT INFORMATION
  Report Type: 
  Country: None (occurrence: None)
  Receive Date: 20080320
  Receipt Date: 20080314
  Transmission Date: 20080703
  Serious: Yes (Hospitalization)
  Sender: FDA-Public Use
  Company Number: GB-ELI_LILLY_AND_COMPANY-GB200708006885

PATIENT
  Sex: Female
  Weight: 89 kg

DRUGS (4)
  1. EXENATIDE [Suspect]
     Indication: HYPERGLYCAEMIA
     Dosage: 5 UG, 2/D
     Route: 058
     Dates: start: 20070725
  2. EXENATIDE [Suspect]
     Dosage: 10 UG, UNKNOWN
     Route: 065
  3. METFORMIN HCL [Concomitant]
  4. SIMVASTATIN [Concomitant]
     Dosage: 40 MG, UNKNOWN
     Route: 048

REACTIONS (4)
  - CELLULITIS [None]
  - CHOKING SENSATION [None]
  - DIARRHOEA [None]
  - ERUCTATION [None]
